FAERS Safety Report 5048647-6 (Version None)
Quarter: 2006Q3

REPORT INFORMATION
  Report Type: 
  Country: None (occurrence: None)
  Receive Date: 20060705
  Receipt Date: 20060613
  Transmission Date: 20061208
  Serious: Yes (Hospitalization)
  Sender: FDA-Public Use
  Company Number: DE200605000312

PATIENT
  Age: 55 Year
  Sex: Female
  Weight: 80 kg

DRUGS (8)
  1. YENTREVE(DULOXETINE HYDROCHLORIDE) CAPSULE [Suspect]
     Indication: URINARY INCONTINENCE
     Dosage: 40 MG, 2/D, ORAL
     Dates: end: 20060404
  2. MICARDIS HCT [Concomitant]
  3. METOPROLOL SUCCINATE [Concomitant]
  4. ROSIGLITAZONE [Concomitant]
  5. BAYMYCARD (NISOLDIPINE) [Concomitant]
  6. FERRO-SANOL DUODENAL (FERROUS SULFATE) [Concomitant]
  7. ARCOXIA [Concomitant]
  8. METFORMIN HCL [Concomitant]

REACTIONS (3)
  - BLOOD PROLACTIN INCREASED [None]
  - BREAST ABSCESS [None]
  - MASTITIS [None]
